FAERS Safety Report 6543146-4 (Version None)
Quarter: 2010Q1

REPORT INFORMATION
  Report Type: 
  Country: None (occurrence: None)
  Receive Date: 20100120
  Receipt Date: 20100111
  Transmission Date: 20100710
  Serious: Yes (Hospitalization, Other)
  Sender: FDA-Public Use
  Company Number: US-AMGEN-QUU362793

PATIENT
  Sex: Female

DRUGS (3)
  1. ENBREL [Suspect]
     Indication: PSORIATIC ARTHROPATHY
     Route: 058
     Dates: start: 20000330
  2. PREDNISONE [Concomitant]
  3. NORFLEX [Concomitant]
     Dates: start: 20010223

REACTIONS (18)
  - AMNESIA [None]
  - ARTHRALGIA [None]
  - BACK PAIN [None]
  - CHONDROCALCINOSIS [None]
  - FAMILY STRESS [None]
  - FOOT FRACTURE [None]
  - HYPOAESTHESIA [None]
  - INJECTION SITE HAEMATOMA [None]
  - INJECTION SITE PAIN [None]
  - LIVER FUNCTION TEST ABNORMAL [None]
  - MIDDLE INSOMNIA [None]
  - MUSCULOSKELETAL PAIN [None]
  - NODAL OSTEOARTHRITIS [None]
  - PAIN [None]
  - PAIN IN EXTREMITY [None]
  - THERAPEUTIC RESPONSE DECREASED [None]
  - THROMBOSIS [None]
  - UTERINE CANCER [None]
